FAERS Safety Report 8004714-6 (Version None)
Quarter: 2011Q4

REPORT INFORMATION
  Report Type: 
  Country: None (occurrence: None)
  Receive Date: 20111223
  Receipt Date: 20111214
  Transmission Date: 20120403
  Serious: Yes (Other)
  Sender: FDA-Public Use
  Company Number: US-JNJFOC-20111207114

PATIENT
  Sex: Female
  Weight: 100.7 kg

DRUGS (13)
  1. FENTANYL-100 [Suspect]
     Route: 062
     Dates: start: 20110101, end: 20110101
  2. FENTANYL-100 [Suspect]
     Dosage: 100 PLUS 50 UG
     Route: 062
     Dates: start: 20110101
  3. MAXALT [Concomitant]
     Indication: MIGRAINE
     Route: 065
  4. LYRICA [Suspect]
     Indication: PAIN
     Route: 048
     Dates: start: 20070101
  5. FENTANYL-100 [Suspect]
     Dosage: 100 PLUS 50 UG
     Route: 062
     Dates: end: 20110101
  6. FENTANYL-100 [Suspect]
     Route: 062
     Dates: start: 20110101, end: 20110101
  7. FENTANYL-100 [Suspect]
     Indication: PAIN
     Dosage: 100 PLUS 50 UG/HR PATCH
     Route: 062
  8. FENTANYL-100 [Suspect]
     Dosage: 100 PLUS 50 UG
     Route: 062
     Dates: start: 20110101
  9. HYDROCODONE [Concomitant]
     Indication: BREAKTHROUGH PAIN
     Dosage: 7.5/325MG AS NEEDED
     Route: 048
  10. FENTANYL-100 [Suspect]
     Indication: FATIGUE
     Dosage: 100 PLUS 50 UG/HR PATCH
     Route: 062
  11. PREDNISONE [Concomitant]
     Indication: ASTHMA
     Route: 065
  12. LYRICA [Suspect]
     Route: 048
     Dates: start: 20070101
  13. FENTANYL-100 [Suspect]
     Dosage: 100 PLUS 50 UG
     Route: 062
     Dates: end: 20110101

REACTIONS (10)
  - CERVICAL CORD COMPRESSION [None]
  - SPINAL DISORDER [None]
  - PRODUCT QUALITY ISSUE [None]
  - MIGRAINE [None]
  - APHASIA [None]
  - ABNORMAL LOSS OF WEIGHT [None]
  - MYOSITIS [None]
  - FATIGUE [None]
  - AMNESIA [None]
  - INSOMNIA [None]
